FAERS Safety Report 9323088 (Version 4)
Quarter: 2013Q4

REPORT INFORMATION
  Report Type: Spontaneous
  Country: US (occurrence: US)
  Receive Date: 20130603
  Receipt Date: 20131007
  Transmission Date: 20140711
  Serious: Yes (Hospitalization)
  Sender: FDA-Public Use
  Company Number: US-BIOGENIDEC-2013BI048049

PATIENT
  Age: 60 Year
  Sex: Female

DRUGS (5)
  1. AVONEX [Suspect]
     Indication: RELAPSING-REMITTING MULTIPLE SCLEROSIS
     Route: 030
     Dates: start: 20030916, end: 20080628
  2. AVONEX [Suspect]
     Indication: RELAPSING-REMITTING MULTIPLE SCLEROSIS
     Route: 030
     Dates: start: 20080801
  3. AVONEX [Suspect]
     Indication: RELAPSING-REMITTING MULTIPLE SCLEROSIS
     Route: 030
     Dates: end: 2011
  4. AVONEX [Suspect]
     Indication: RELAPSING-REMITTING MULTIPLE SCLEROSIS
     Route: 030
     Dates: start: 2011
  5. AVONEX [Suspect]
     Indication: RELAPSING-REMITTING MULTIPLE SCLEROSIS
     Route: 030
     Dates: start: 20130720

REACTIONS (11)
  - Hernia [Recovered/Resolved]
  - Rectocele [Recovered/Resolved]
  - Device related infection [Recovered/Resolved]
  - Post procedural haemorrhage [Recovered/Resolved]
  - Migraine [Recovered/Resolved]
  - Lipase abnormal [Not Recovered/Not Resolved]
  - Amylase abnormal [Not Recovered/Not Resolved]
  - Impaired healing [Unknown]
  - Device occlusion [Unknown]
  - Nasopharyngitis [Not Recovered/Not Resolved]
  - Oropharyngeal pain [Not Recovered/Not Resolved]
